FAERS Safety Report 19684827 (Version 1)
Quarter: 2021Q3

REPORT INFORMATION
  Report Type: Spontaneous
  Country: US (occurrence: US)
  Receive Date: 20210811
  Receipt Date: 20210811
  Transmission Date: 20211014
  Serious: Yes (Hospitalization)
  Sender: FDA-Public Use
  Company Number: None

PATIENT
  Sex: Female

DRUGS (4)
  1. OMEPRAZOLE. [Concomitant]
     Active Substance: OMEPRAZOLE
  2. FOLIC ACID. [Concomitant]
     Active Substance: FOLIC ACID
  3. MULTIPLE VITAMIN [Concomitant]
     Active Substance: VITAMINS
  4. DEFERASIROX. [Suspect]
     Active Substance: DEFERASIROX
     Indication: HYPERCOAGULATION
     Route: 048
     Dates: start: 20190830

REACTIONS (1)
  - Abdominal pain upper [None]
